FAERS Safety Report 5638367-9 (Version None)
Quarter: 2008Q1

REPORT INFORMATION
  Report Type: 
  Country: None (occurrence: None)
  Receive Date: 20080226
  Receipt Date: 20080215
  Transmission Date: 20080703
  Serious: Yes (Other)
  Sender: FDA-Public Use
  Company Number: US-AVENTIS-200810207US

PATIENT
  Sex: Male
  Weight: 100.2 kg

DRUGS (15)
  1. LEFLUNOMIDE [Suspect]
     Indication: RHEUMATOID ARTHRITIS
     Route: 048
     Dates: start: 20070116, end: 20070125
  2. METFORMIN HCL [Concomitant]
  3. VERAPAMIL [Concomitant]
     Indication: BLOOD PRESSURE
     Dosage: DOSE: ^240^
  4. NITROGLYCERIN [Concomitant]
  5. CATAPRES                           /00171101/ [Concomitant]
     Indication: BLOOD PRESSURE
     Dosage: DOSE: ONE PER WEEK
  6. ASPIRIN [Concomitant]
     Dosage: DOSE: UNK
  7. PLAVIX [Concomitant]
  8. GABAPENTIN [Concomitant]
  9. PREDNISONE TAB [Concomitant]
  10. GEMFIBROZIL [Concomitant]
     Indication: LIPIDS
  11. PROTONIX [Concomitant]
  12. HYDROCODONE BITARTRATE [Concomitant]
     Dosage: DOSE: UNK
  13. LESCOL [Concomitant]
  14. LORCET                             /00607101/ [Concomitant]
     Indication: PAIN
     Dosage: DOSE: 10/650
  15. ENBREL [Concomitant]
     Indication: RHEUMATOID ARTHRITIS
     Dosage: DOSE: 25MG 3X WEEK
     Dates: start: 19990407

REACTIONS (18)
  - ABDOMINAL PAIN [None]
  - ACCIDENTAL OVERDOSE [None]
  - ANXIETY [None]
  - BLOOD URINE PRESENT [None]
  - DEPRESSION [None]
  - DIPLOPIA [None]
  - DIZZINESS [None]
  - GLUCOSE URINE PRESENT [None]
  - HALLUCINATION [None]
  - HEADACHE [None]
  - HEPATIC STEATOSIS [None]
  - HYPERGLYCAEMIA [None]
  - HYPERTENSION [None]
  - MOOD SWINGS [None]
  - NAUSEA [None]
  - SLEEP DISORDER [None]
  - VISION BLURRED [None]
  - WHITE BLOOD CELL COUNT INCREASED [None]
